FAERS Safety Report 5115556-3 (Version None)
Quarter: 2006Q3

REPORT INFORMATION
  Report Type: 
  Country: None (occurrence: None)
  Receive Date: 20060927
  Receipt Date: 20060915
  Transmission Date: 20061208
  Serious: Yes (Other)
  Sender: FDA-Public Use
  Company Number: PT-JNJFOC-20060804594

PATIENT
  Age: 44 Year
  Sex: Female

DRUGS (5)
  1. RISPERDAL CONSTA [Suspect]
     Route: 030
  2. RISPERDAL CONSTA [Suspect]
     Indication: MAJOR DEPRESSION
     Route: 030
  3. RISPERDAL [Suspect]
     Route: 048
  4. RISPERDAL [Suspect]
     Indication: MAJOR DEPRESSION
     Route: 048
  5. ESCITALOPRAM OXALATE [Concomitant]
     Indication: DEPRESSION

REACTIONS (2)
  - ABORTION SPONTANEOUS [None]
  - DRUG EXPOSURE DURING PREGNANCY [None]
